FAERS Safety Report 6557311-3 (Version None)
Quarter: 2010Q1

REPORT INFORMATION
  Report Type: 
  Country: None (occurrence: None)
  Receive Date: 20100127
  Receipt Date: 20100127
  Transmission Date: 20100710
  Serious: Yes (Death, Life-Threatening, Hospitalization, Disabling, Other)
  Sender: FDA-Public Use
  Company Number: None

PATIENT
  Age: 43 Year
  Sex: Female

DRUGS (2)
  1. OXYCODONE IR 30MG [Suspect]
     Indication: ABSCESS DRAINAGE
     Dosage: 30MG Q4 PO
     Route: 048
     Dates: start: 20100121, end: 20100122
  2. OXYCODONE IR 30MG [Suspect]
     Indication: PAIN
     Dosage: 30MG Q4 PO
     Route: 048
     Dates: start: 20100121, end: 20100122

REACTIONS (2)
  - CARDIAC ARREST [None]
  - DYSPNOEA [None]
